FAERS Safety Report 15788095 (Version 1)
Quarter: 2019Q1

REPORT INFORMATION
  Report Type: Report from Study
  Country: US (occurrence: US)
  Receive Date: 20190104
  Receipt Date: 20190104
  Transmission Date: 20190417
  Serious: Yes (Other)
  Sender: FDA-Public Use
  Company Number: US-UCBSA-2018048884

PATIENT
  Sex: Female

DRUGS (1)
  1. CERTOLIZUMAB PEGOL [Suspect]
     Active Substance: CERTOLIZUMAB PEGOL
     Indication: CROHN^S DISEASE
     Dosage: 400 MG, EV 4 WEEKS
     Route: 058
     Dates: start: 20180905

REACTIONS (5)
  - Skin infection [Not Recovered/Not Resolved]
  - Drug ineffective [Unknown]
  - Oral candidiasis [Unknown]
  - Lip swelling [Unknown]
  - Dry skin [Unknown]

NARRATIVE: CASE EVENT DATE: 2018
